FAERS Safety Report 7416179-3 (Version None)
Quarter: 2011Q2

REPORT INFORMATION
  Report Type: 
  Country: None (occurrence: None)
  Receive Date: 20110414
  Receipt Date: 20110412
  Transmission Date: 20111010
  Serious: Yes (Other)
  Sender: FDA-Public Use
  Company Number: CHPA2011GB05256

PATIENT
  Age: 78 Year
  Sex: Female

DRUGS (1)
  1. EX-LAX CHOCOLATE PIECES [Suspect]
     Dosage: 12 DF, ONCE/SINGLE
     Route: 048

REACTIONS (3)
  - ACCIDENTAL OVERDOSE [None]
  - DRUG LABEL CONFUSION [None]
  - LOSS OF CONSCIOUSNESS [None]
